FAERS Safety Report 8906278 (Version 1)
Quarter: 2012Q4

REPORT INFORMATION
  Report Type: Spontaneous
  Country: US (occurrence: None)
  Receive Date: 20121112
  Receipt Date: 20121112
  Transmission Date: 20130627
  Serious: Yes (Other)
  Sender: FDA-Public Use
  Company Number: None

PATIENT
  Age: 46 Year
  Sex: Female
  Weight: 47.63 kg

DRUGS (1)
  1. VIIBRYD [Suspect]
     Indication: MAJOR DEPRESSION
     Route: 048
     Dates: start: 20120715, end: 20121107

REACTIONS (6)
  - Heart rate increased [None]
  - Headache [None]
  - Nausea [None]
  - Anxiety [None]
  - Insomnia [None]
  - Depression [None]
